FAERS Safety Report 7588112-5 (Version None)
Quarter: 2011Q2

REPORT INFORMATION
  Report Type: 
  Country: None (occurrence: None)
  Receive Date: 20110603
  Receipt Date: 20110414
  Transmission Date: 20111010
  Serious: No
  Sender: FDA-Public Use
  Company Number: 2011SP017048

PATIENT
  Age: 49 Year
  Sex: Male

DRUGS (4)
  1. SAPHRIS [Suspect]
     Indication: BIPOLAR DISORDER
     Dosage: 10 MG; BID; SL
     Route: 060
     Dates: start: 20101101
  2. TOPAMAX [Concomitant]
  3. EFFEXOR [Concomitant]
  4. BUSPAR [Concomitant]

REACTIONS (1)
  - DIARRHOEA [None]
